FAERS Safety Report 24366530 (Version 2)
Quarter: 2024Q4

REPORT INFORMATION
  Report Type: Spontaneous
  Country: US (occurrence: US)
  Receive Date: 20240926
  Receipt Date: 20241003
  Transmission Date: 20250115
  Serious: Yes (Other)
  Sender: BAYER
  Company Number: US-BAYER-2024A133677

PATIENT
  Age: 43 Year
  Sex: Female

DRUGS (1)
  1. MIRENA [Suspect]
     Active Substance: LEVONORGESTREL
     Indication: Abnormal uterine bleeding
     Dosage: 20?G/DAY
     Route: 015
     Dates: start: 20200401, end: 20240816

REACTIONS (4)
  - Device breakage [None]
  - Genital haemorrhage [Not Recovered/Not Resolved]
  - Genital haemorrhage [Recovering/Resolving]
  - Complication of device removal [None]

NARRATIVE: CASE EVENT DATE: 20240816
